FAERS Safety Report 8874715 (Version 1)
Quarter: 2012Q4

REPORT INFORMATION
  Report Type: 
  Country: AU (occurrence: AU)
  Receive Date: 20121023
  Receipt Date: 20121023
  Transmission Date: 20130627
  Serious: Yes (Other)
  Sender: FDA-Public Use
  Company Number: AU-ROCHE-1144317

PATIENT
  Sex: Male

DRUGS (1)
  1. RANIBIZUMAB [Suspect]
     Indication: CHOROIDAL NEOVASCULARISATION
     Route: 050

REACTIONS (6)
  - Intraocular pressure increased [Unknown]
  - Optic nerve cup/disc ratio increased [Unknown]
  - Anterior chamber cell [Unknown]
  - Eye pain [Unknown]
  - Vision blurred [Unknown]
  - Headache [Unknown]
